FAERS Safety Report 4920500-5 (Version None)
Quarter: 2006Q1

REPORT INFORMATION
  Report Type: 
  Country: None (occurrence: None)
  Receive Date: 20060217
  Receipt Date: 20060203
  Transmission Date: 20060701
  Serious: Yes (Hospitalization)
  Sender: FDA-Public Use
  Company Number: US016520

PATIENT
  Age: 64 Year
  Sex: Female
  Weight: 60.3284 kg

DRUGS (12)
  1. PROVIGIL [Suspect]
     Dates: end: 20051109
  2. PROVIGIL [Suspect]
     Dates: start: 20051110, end: 20051120
  3. EFFEXOR XR [Concomitant]
  4. TOPAMAX [Concomitant]
  5. PROVIGIL [Suspect]
     Dates: start: 20051121, end: 20051130
  6. WELLBUTRIN [Suspect]
     Dosage: 300 MG QD ORAL
     Route: 048
     Dates: end: 20051110
  7. WELLBUTRIN [Suspect]
     Dosage: 450 MG QAM
     Dates: start: 20051110, end: 20051121
  8. WELLBUTRIN [Suspect]
     Dosage: 300 MG QD ORAL
     Route: 048
     Dates: start: 20051121
  9. PEG-INTRON [Suspect]
     Indication: HEPATITIS C
     Dosage: 500 MG BID ORAL
     Route: 048
     Dates: start: 20050324
  10. RIBASPHERE [Suspect]
     Indication: HEPATITIS C
     Dosage: 96 UG QWKLY SUBCUTANEOUS
     Route: 058
     Dates: start: 20050324
  11. ... [Concomitant]
  12. .. [Concomitant]

REACTIONS (11)
  - ABASIA [None]
  - ABDOMINAL PAIN UPPER [None]
  - APHASIA [None]
  - ASTHENIA [None]
  - DYSPHEMIA [None]
  - FEELING JITTERY [None]
  - HYPOAESTHESIA [None]
  - LOSS OF CONTROL OF LEGS [None]
  - MENTAL STATUS CHANGES [None]
  - NERVOUSNESS [None]
  - TREMOR [None]
